FAERS Safety Report 7706804-1 (Version None)
Quarter: 2011Q3

REPORT INFORMATION
  Report Type: 
  Country: None (occurrence: None)
  Receive Date: 20110824
  Receipt Date: 20110815
  Transmission Date: 20111222
  Serious: Yes (Hospitalization, Disabling, Other)
  Sender: FDA-Public Use
  Company Number: US-MERCK-96070701

PATIENT
  Age: 62 Year
  Sex: Female

DRUGS (7)
  1. FOSAMAX [Suspect]
     Route: 048
     Dates: start: 20001001, end: 20100101
  2. VITAMIN E [Concomitant]
     Route: 065
  3. ATENOLOL [Concomitant]
     Route: 065
  4. PREMARIN [Concomitant]
     Route: 065
  5. FOSAMAX [Suspect]
     Indication: OSTEOPOROSIS
     Route: 048
     Dates: start: 19960702, end: 20001001
  6. VITAMINS [Concomitant]
     Route: 065
  7. CALCIUM [Concomitant]
     Route: 065

REACTIONS (12)
  - LIMB DISCOMFORT [None]
  - GAIT DISTURBANCE [None]
  - ARTHROPATHY [None]
  - MUSCULAR WEAKNESS [None]
  - OSTEONECROSIS OF JAW [None]
  - LIMB ASYMMETRY [None]
  - TOOTH DISORDER [None]
  - BONE LOSS [None]
  - CHOKING [None]
  - JAW DISORDER [None]
  - DYSPHAGIA [None]
  - DYSPEPSIA [None]
